FAERS Safety Report 14361806 (Version 3)
Quarter: 2018Q1

REPORT INFORMATION
  Report Type: Spontaneous
  Country: US (occurrence: US)
  Receive Date: 20180108
  Receipt Date: 20180326
  Transmission Date: 20180509
  Serious: No
  Sender: FDA-Public Use
  Company Number: US-B.I. PHARMACEUTICALS,INC./RIDGEFIELD-2018-BI-000448

PATIENT
  Age: 79 Year
  Sex: Male

DRUGS (9)
  1. LISINOPRIL. [Concomitant]
     Active Substance: LISINOPRIL
     Indication: HYPERTENSION
     Dosage: ONE CAPLET DAILY;  FORM STRENGTH: 40MG; FORMULATION: CAPLET
     Route: 048
     Dates: start: 2003
  2. TAMSULOSIN [Concomitant]
     Active Substance: TAMSULOSIN
     Indication: PROSTATIC DISORDER
     Dosage: TWO TABS AT HS;  FORM STRENGTH: .4MG; FORMULATION: TABLET
     Route: 048
  3. METFORMIN [Concomitant]
     Active Substance: METFORMIN HYDROCHLORIDE
     Indication: DIABETES MELLITUS
     Dosage: ONE CAPLET DAILY;  FORM STRENGTH: 500MG; FORMULATION: CAPLET
     Route: 048
  4. SIMVASTATIN. [Concomitant]
     Active Substance: SIMVASTATIN
     Indication: BLOOD CHOLESTEROL INCREASED
     Dosage: ONE CAPLET DAILY;  FORM STRENGTH: 40MG; FORMULATION: CAPLET
     Route: 048
  5. BABY ASPIRIN [Concomitant]
     Active Substance: ASPIRIN
     Indication: ANTICOAGULANT THERAPY
     Dosage: ONE CAPLET DAILY;  FORM STRENGTH: 81MG; FORMULATION: CAPLET
     Route: 048
  6. SPIRIVA [Suspect]
     Active Substance: TIOTROPIUM BROMIDE MONOHYDRATE
     Dosage: 2 INHALATIONS FROM ONE CAPSULE DAILY;
     Route: 055
     Dates: start: 20171210
  7. SPIRIVA [Suspect]
     Active Substance: TIOTROPIUM BROMIDE MONOHYDRATE
     Indication: CHRONIC OBSTRUCTIVE PULMONARY DISEASE
     Dosage: 2 INHALATIONS FROM ONE CAPSULE DAILY
     Route: 055
     Dates: start: 201704, end: 20171119
  8. GLIMEPIRIDE. [Concomitant]
     Active Substance: GLIMEPIRIDE
     Indication: DIABETES MELLITUS
     Dosage: ONE CAPLET DAILY;  FORM STRENGTH: 2MG; FORMULATION: CAPLET
     Route: 048
  9. METOPROLOL. [Concomitant]
     Active Substance: METOPROLOL
     Indication: HYPERTENSION
     Dosage: ONE CAPLET DAILY;  FORM STRENGTH: 25MG; FORMULATION: CAPLET
     Route: 048

REACTIONS (2)
  - Abdominal pain [Recovered/Resolved]
  - Product physical issue [Unknown]

NARRATIVE: CASE EVENT DATE: 201711
